FAERS Safety Report 9968849 (Version 1)
Quarter: 2014Q1

REPORT INFORMATION
  Report Type: Report from Study
  Country: US (occurrence: US)
  Receive Date: 20140306
  Receipt Date: 20140306
  Transmission Date: 20141002
  Serious: No
  Sender: FDA-Public Use
  Company Number: US-ABBVIE-13P-163-1147278-00

PATIENT
  Age: 58 Year
  Sex: Female

DRUGS (2)
  1. HUMIRA [Suspect]
     Indication: PSORIASIS
     Dates: start: 20130906, end: 20130906
  2. HUMIRA [Suspect]

REACTIONS (2)
  - Pruritus [Not Recovered/Not Resolved]
  - Injection site pain [Not Recovered/Not Resolved]
